FAERS Safety Report 14015075 (Version 1)
Quarter: 2017Q3

REPORT INFORMATION
  Report Type: Spontaneous
  Country: US (occurrence: US)
  Receive Date: 20170927
  Receipt Date: 20170927
  Transmission Date: 20171128
  Serious: No
  Sender: FDA-Public Use
  Company Number: US-009507513-1709USA007862

PATIENT
  Age: 75 Year
  Sex: Male

DRUGS (1)
  1. JANUVIA [Suspect]
     Active Substance: SITAGLIPTIN PHOSPHATE
     Indication: DIABETES MELLITUS
     Dosage: 100 MG (ONE TABLET), QD
     Route: 048
     Dates: start: 2017

REACTIONS (3)
  - Insomnia [Unknown]
  - Pruritus generalised [Unknown]
  - Pruritus [Unknown]

NARRATIVE: CASE EVENT DATE: 2017
